FAERS Safety Report 6054106-4 (Version None)
Quarter: 2009Q1

REPORT INFORMATION
  Report Type: 
  Country: None (occurrence: None)
  Receive Date: 20090123
  Receipt Date: 20090123
  Transmission Date: 20090719
  Serious: Yes (Other)
  Sender: FDA-Public Use
  Company Number: None

PATIENT
  Age: 6 Year
  Sex: Female
  Weight: 16.6 kg

DRUGS (3)
  1. SINGULAIR [Suspect]
     Indication: ASTHMA
     Dosage: SEE IMAGE
     Route: 048
     Dates: end: 20030201
  2. SINGULAIR [Suspect]
     Indication: ASTHMA
     Dosage: SEE IMAGE
     Route: 048
     Dates: start: 20030222, end: 20041101
  3. ALBUTEROL [Concomitant]

REACTIONS (2)
  - ABDOMINAL PAIN UPPER [None]
  - ANXIETY [None]
